FAERS Safety Report 5910861-2 (Version None)
Quarter: 2008Q4

REPORT INFORMATION
  Report Type: 
  Country: None (occurrence: None)
  Receive Date: 20081007
  Receipt Date: 20080528
  Transmission Date: 20090506
  Serious: No
  Sender: FDA-Public Use
  Company Number: US-ASTRAZENECA-2008UW10799

PATIENT
  Sex: Female

DRUGS (10)
  1. ARIMIDEX [Suspect]
     Route: 048
  2. LEVOTHYROXINE SODIUM [Concomitant]
  3. NIFEDIPINE [Concomitant]
  4. IMDUR [Concomitant]
  5. WELCHOL [Concomitant]
  6. CALTRATE 600+D [Concomitant]
  7. VITAMIN D [Concomitant]
  8. BIOTIN [Concomitant]
  9. CENTRUM [Concomitant]
  10. PRILOSEC [Concomitant]
     Route: 048

REACTIONS (1)
  - ADVERSE EVENT [None]
